FAERS Safety Report 21655567 (Version 1)
Quarter: 2022Q4

REPORT INFORMATION
  Report Type: Spontaneous
  Country: AU (occurrence: AU)
  Receive Date: 20221129
  Receipt Date: 20221129
  Transmission Date: 20230112
  Serious: No
  Sender: FDA-Public Use
  Company Number: AU-ALKEM LABORATORIES LIMITED-AU-ALKEM-2022-07934

PATIENT
  Age: 36 Year
  Sex: Male

DRUGS (1)
  1. OLANZAPINE [Suspect]
     Active Substance: OLANZAPINE
     Indication: Craniocerebral injury
     Dosage: 10 MILLIGRAM
     Route: 065

REACTIONS (2)
  - Constipation [Unknown]
  - Weight increased [Unknown]
